APPROVED DRUG PRODUCT: MELOXICAM
Active Ingredient: MELOXICAM
Strength: 15MG
Dosage Form/Route: TABLET;ORAL
Application: A078039 | Product #002
Applicant: CHINA RESOURCES DOUBLE CRANE PHARMACEUTICAL CO LTD
Approved: Dec 14, 2006 | RLD: No | RS: No | Type: DISCN